FAERS Safety Report 8516213-3 (Version None)
Quarter: 2012Q3

REPORT INFORMATION
  Report Type: 
  Country: None (occurrence: None)
  Receive Date: 20120717
  Receipt Date: 20120707
  Transmission Date: 20120928
  Serious: Yes (Other)
  Sender: FDA-Public Use
  Company Number: FR-ROCHE-1087850

PATIENT
  Age: 60 Year
  Sex: Female

DRUGS (2)
  1. OLMESARTAN MEDOXOMIL [Concomitant]
     Indication: HYPERTENSION
  2. LUCENTIS [Suspect]
     Indication: AGE-RELATED MACULAR DEGENERATION
     Route: 050
     Dates: start: 20120102

REACTIONS (6)
  - EYELID OEDEMA [None]
  - VISUAL ACUITY REDUCED [None]
  - CONJUNCTIVITIS INFECTIVE [None]
  - CONJUNCTIVAL HAEMORRHAGE [None]
  - EYE BURNS [None]
  - DRUG INEFFECTIVE [None]
